FAERS Safety Report 7712899-1 (Version None)
Quarter: 2011Q3

REPORT INFORMATION
  Report Type: 
  Country: None (occurrence: None)
  Receive Date: 20110826
  Receipt Date: 20110817
  Transmission Date: 20111222
  Serious: Yes (Other)
  Sender: FDA-Public Use
  Company Number: PHEH2010US03423

PATIENT
  Sex: Female

DRUGS (2)
  1. AREDIA [Suspect]
  2. AVASTIN [Concomitant]

REACTIONS (30)
  - METASTASES TO CENTRAL NERVOUS SYSTEM [None]
  - DISABILITY [None]
  - FATIGUE [None]
  - LYMPHOEDEMA [None]
  - PLEURAL EFFUSION [None]
  - PINEAL GLAND CYST [None]
  - PAIN [None]
  - ANHEDONIA [None]
  - DEPRESSION [None]
  - METASTASES TO PELVIS [None]
  - BLOOD ALKALINE PHOSPHATASE INCREASED [None]
  - SKIN HAEMORRHAGE [None]
  - METASTASES TO SPINE [None]
  - FALL [None]
  - GAMMA-GLUTAMYLTRANSFERASE INCREASED [None]
  - BONE LESION [None]
  - OEDEMA PERIPHERAL [None]
  - OSTEONECROSIS OF JAW [None]
  - INJURY [None]
  - ASPARTATE AMINOTRANSFERASE INCREASED [None]
  - BREAST CANCER STAGE IV [None]
  - METASTASES TO BONE [None]
  - METASTASES TO CHEST WALL [None]
  - LUNG NEOPLASM [None]
  - ANXIETY [None]
  - SKIN DISORDER [None]
  - SPLENOMEGALY [None]
  - SOFT TISSUE INFLAMMATION [None]
  - ANAEMIA [None]
  - SKIN MASS [None]
